FAERS Safety Report 10183212 (Version 1)
Quarter: 2014Q2

REPORT INFORMATION
  Report Type: Report from Study
  Country: US (occurrence: US)
  Receive Date: 20140520
  Receipt Date: 20140520
  Transmission Date: 20141212
  Serious: Yes (Other)
  Sender: FDA-Public Use
  Company Number: US-ROCHE-1400039

PATIENT
  Age: 71 Year
  Sex: Female
  Weight: 98.97 kg

DRUGS (2)
  1. HERCEPTIN [Suspect]
     Indication: BREAST CANCER
     Route: 042
  2. PROLIA [Concomitant]
     Route: 065

REACTIONS (8)
  - Tumour marker increased [Recovering/Resolving]
  - Influenza like illness [Recovering/Resolving]
  - Pain in extremity [Not Recovered/Not Resolved]
  - Arthralgia [Not Recovered/Not Resolved]
  - Lethargy [Not Recovered/Not Resolved]
  - Osteoporosis [Unknown]
  - Joint stiffness [Not Recovered/Not Resolved]
  - Glycosylated haemoglobin increased [Unknown]
